FAERS Safety Report 7494179-5 (Version None)
Quarter: 2011Q2

REPORT INFORMATION
  Report Type: 
  Country: None (occurrence: None)
  Receive Date: 20110520
  Receipt Date: 20110511
  Transmission Date: 20111010
  Serious: Yes (Other)
  Sender: FDA-Public Use
  Company Number: JP-JNJFOC-20110500630

PATIENT
  Age: 40 Year
  Sex: Male

DRUGS (5)
  1. MAGNESIUM OXIDE [Concomitant]
     Route: 065
  2. DEPAKENE [Concomitant]
     Route: 065
  3. TOPIRAMATE [Suspect]
     Indication: EPILEPSY
     Route: 048
     Dates: start: 20110406
  4. TOPIRAMATE [Suspect]
     Route: 048
     Dates: start: 20110322, end: 20110405
  5. GABAPENTIN [Concomitant]
     Route: 065

REACTIONS (1)
  - EPILEPSY [None]
